FAERS Safety Report 20696350 (Version 2)
Quarter: 2022Q2

REPORT INFORMATION
  Report Type: Spontaneous
  Country: JP (occurrence: JP)
  Receive Date: 20220411
  Receipt Date: 20220426
  Transmission Date: 20220721
  Serious: Yes (Life-Threatening, Hospitalization)
  Sender: FDA-Public Use
  Company Number: JP-TEVA-2022-JP-2025887

PATIENT
  Age: 72 Year
  Sex: Male

DRUGS (16)
  1. PREDNISOLONE [Suspect]
     Active Substance: PREDNISOLONE
     Indication: Drug-induced liver injury
     Dosage: 25 MILLIGRAM DAILY;
     Route: 065
  2. PREDNISOLONE [Suspect]
     Active Substance: PREDNISOLONE
     Indication: Pneumonitis
     Dosage: 100 MILLIGRAM DAILY;
     Route: 065
  3. FAMOTIDINE [Suspect]
     Active Substance: FAMOTIDINE
     Indication: Hepatitis
     Dosage: 20 MG
     Route: 065
  4. PEMBROLIZUMAB [Suspect]
     Active Substance: PEMBROLIZUMAB
     Indication: Non-small cell lung cancer stage IV
     Dosage: 200 MG/BODY ON DAY 1; 4 CYCLES
     Route: 065
  5. PEMBROLIZUMAB [Suspect]
     Active Substance: PEMBROLIZUMAB
     Indication: Metastasis
  6. ESOMEPRAZOLE [Suspect]
     Active Substance: ESOMEPRAZOLE
     Indication: Hepatitis
     Dosage: 20 MG
     Route: 065
  7. ATOVAQUONE [Suspect]
     Active Substance: ATOVAQUONE
     Indication: Pneumonitis
     Dosage: 1500 MG
     Route: 065
  8. METHYLPREDNISOLONE [Suspect]
     Active Substance: METHYLPREDNISOLONE
     Indication: Drug-induced liver injury
     Dosage: 1000 MILLIGRAM DAILY; PULSE
     Route: 065
  9. FILGRASTIM [Suspect]
     Active Substance: FILGRASTIM
     Indication: Neutropenia
     Dosage: 75 MICROGRAM DAILY;
     Route: 058
  10. AMLODIPINE [Concomitant]
     Active Substance: AMLODIPINE BESYLATE
     Indication: Product used for unknown indication
     Dosage: 5 MG
     Route: 065
  11. LEVOTHYROXINE [Concomitant]
     Active Substance: LEVOTHYROXINE
     Indication: Hypothyroidism
     Dosage: 100 MICROGRAM DAILY;
     Route: 065
  12. Ursodeoxycholic-acid [Concomitant]
     Indication: Drug-induced liver injury
     Dosage: 900 MG
     Route: 065
  13. CARBOPLATIN [Concomitant]
     Active Substance: CARBOPLATIN
     Indication: Non-small cell lung cancer stage IV
     Dosage: FOUR CYCLES; CYCLE LASTED 28 DAYS
     Route: 065
  14. CARBOPLATIN [Concomitant]
     Active Substance: CARBOPLATIN
     Indication: Metastasis
  15. PEMETREXED [Concomitant]
     Active Substance: PEMETREXED
     Indication: Non-small cell lung cancer stage IV
     Dosage: 4 CYCLES; 500 MG/M2 ON DAY 1; THE CYCLE LASTED 28 DAYS
     Route: 065
  16. PEMETREXED [Concomitant]
     Active Substance: PEMETREXED
     Indication: Metastasis

REACTIONS (6)
  - Hypothyroidism [Unknown]
  - Pneumonitis [Recovered/Resolved]
  - Neutropenia [Recovered/Resolved]
  - Drug-induced liver injury [Recovering/Resolving]
  - Hepatic function abnormal [Unknown]
  - Drug ineffective [Unknown]
